FAERS Safety Report 13451183 (Version 1)
Quarter: 2017Q2

REPORT INFORMATION
  Report Type: Spontaneous
  Country: US (occurrence: US)
  Receive Date: 20170418
  Receipt Date: 20170418
  Transmission Date: 20170830
  Serious: Yes (Hospitalization, Other)
  Sender: FDA-Public Use
  Company Number: US-SUN PHARMACEUTICAL INDUSTRIES LTD-2017US-138505

PATIENT
  Sex: Male

DRUGS (2)
  1. TRAMADOL. [Suspect]
     Active Substance: TRAMADOL
     Indication: PAIN
     Dosage: UNK
     Route: 065
  2. CODEINE [Suspect]
     Active Substance: CODEINE
     Indication: COUGH
     Dosage: UNK
     Route: 065
     Dates: start: 2017

REACTIONS (4)
  - Overdose [Unknown]
  - Withdrawal syndrome [Unknown]
  - Blood alcohol [Unknown]
  - Drug screen positive [Unknown]

NARRATIVE: CASE EVENT DATE: 2017
